FAERS Safety Report 7338811-5 (Version None)
Quarter: 2011Q1

REPORT INFORMATION
  Report Type: 
  Country: None (occurrence: None)
  Receive Date: 20110308
  Receipt Date: 20110302
  Transmission Date: 20110831
  Serious: Yes (Disabling)
  Sender: FDA-Public Use
  Company Number: JP-MERCK-1102USA01128

PATIENT
  Age: 73 Year
  Sex: Female

DRUGS (1)
  1. COSOPT [Suspect]
     Indication: GLAUCOMA
     Dosage: ONE DROP EACH EYE FOR BOTH EYES PER DOSE
     Route: 047
     Dates: start: 20100723, end: 20101003

REACTIONS (4)
  - MYOPIA [None]
  - CATARACT [None]
  - VISUAL ACUITY REDUCED [None]
  - LENS DISORDER [None]
